FAERS Safety Report 17781557 (Version 1)
Quarter: 2020Q2

REPORT INFORMATION
  Report Type: Spontaneous
  Country: US (occurrence: US)
  Receive Date: 20200514
  Receipt Date: 20200514
  Transmission Date: 20200714
  Serious: No
  Sender: FDA-Public Use
  Company Number: US-TEVA-2020-US-1234731

PATIENT
  Age: 81 Year
  Sex: Female

DRUGS (1)
  1. METOPROLOL SUCCINATE TEVA [Suspect]
     Active Substance: METOPROLOL SUCCINATE
     Dosage: 1 TABLET DAILY IN THE EVENING
     Route: 065

REACTIONS (4)
  - Fatigue [Unknown]
  - Frequent bowel movements [Unknown]
  - Pollakiuria [Unknown]
  - Hunger [Unknown]
